FAERS Safety Report 10658476 (Version 1)
Quarter: 2014Q4

REPORT INFORMATION
  Report Type: Spontaneous
  Country: CA (occurrence: CA)
  Receive Date: 20141217
  Receipt Date: 20141217
  Transmission Date: 20150529
  Serious: Yes (Hospitalization, Other)
  Sender: FDA-Public Use
  Company Number: CA-B.I. PHARMACEUTICALS,INC./RIDGEFIELD-2014-BI-60210GD

PATIENT
  Age: 69 Year
  Sex: Male

DRUGS (1)
  1. PRADAXA [Suspect]
     Active Substance: DABIGATRAN ETEXILATE MESYLATE
     Indication: PRODUCT USED FOR UNKNOWN INDICATION
     Route: 065

REACTIONS (10)
  - Leukocytosis [Unknown]
  - Sepsis [Unknown]
  - Empyema [Unknown]
  - Odynophagia [Unknown]
  - Oesophageal perforation [Unknown]
  - Post procedural complication [Unknown]
  - Pleural effusion [Unknown]
  - Pyrexia [Unknown]
  - Pleuritic pain [Unknown]
  - Hypocoagulable state [Unknown]
